FAERS Safety Report 15841025 (Version 1)
Quarter: 2019Q1

REPORT INFORMATION
  Report Type: Spontaneous
  Country: US (occurrence: US)
  Receive Date: 20190118
  Receipt Date: 20190118
  Transmission Date: 20190417
  Serious: No
  Sender: FDA-Public Use
  Company Number: US-ASTRAZENECA-2019SE01389

PATIENT
  Sex: Female

DRUGS (1)
  1. BYDUREON [Suspect]
     Active Substance: EXENATIDE
     Route: 065

REACTIONS (6)
  - Gait disturbance [Unknown]
  - Limb mass [Unknown]
  - Abdominal pain upper [Unknown]
  - Venous thrombosis [Unknown]
  - Malaise [Unknown]
  - Vomiting [Unknown]
